FAERS Safety Report 6608535-8 (Version None)
Quarter: 2010Q1

REPORT INFORMATION
  Report Type: 
  Country: None (occurrence: None)
  Receive Date: 20100226
  Receipt Date: 20100226
  Transmission Date: 20100710
  Serious: Yes (Other)
  Sender: FDA-Public Use
  Company Number: None

PATIENT
  Sex: Female
  Weight: 83.9154 kg

DRUGS (1)
  1. MALARONE [Suspect]
     Indication: MALARIA
     Dosage: 1 DAILY PO
     Route: 048
     Dates: start: 20100207, end: 20100222

REACTIONS (1)
  - RASH PRURITIC [None]
